FAERS Safety Report 9470827 (Version 3)
Quarter: 2015Q2

REPORT INFORMATION
  Report Type: Spontaneous
  Country: US (occurrence: US)
  Receive Date: 20130822
  Receipt Date: 20150610
  Transmission Date: 20150821
  Serious: Yes (Hospitalization, Congenital Anomaly, Other)
  Sender: FDA-Public Use
  Company Number: US-ELI_LILLY_AND_COMPANY-US201308005409

PATIENT

DRUGS (14)
  1. PHENERGAN [Concomitant]
     Active Substance: PROMETHAZINE HYDROCHLORIDE
  2. PRENAT                             /07714001/ [Concomitant]
     Route: 064
  3. ERYTHROMYCIN. [Concomitant]
     Active Substance: ERYTHROMYCIN
     Route: 064
  4. AMOXICILLIN. [Concomitant]
     Active Substance: AMOXICILLIN
  5. BETAMETHASONE [Concomitant]
     Active Substance: BETAMETHASONE
  6. BIAXIN [Concomitant]
     Active Substance: CLARITHROMYCIN
     Route: 064
  7. PENICILLIN                         /00000901/ [Concomitant]
     Active Substance: PENICILLIN
     Route: 064
  8. EFFEXOR [Concomitant]
     Active Substance: VENLAFAXINE HYDROCHLORIDE
  9. FERROUS SULFATE [Concomitant]
     Active Substance: FERROUS SULFATE\FERROUS SULFATE, DRIED
     Route: 064
  10. ATIVAN [Concomitant]
     Active Substance: LORAZEPAM
     Route: 064
  11. TYLENOL [Concomitant]
     Active Substance: ACETAMINOPHEN
  12. PROZAC [Suspect]
     Active Substance: FLUOXETINE HYDROCHLORIDE
     Indication: DEPRESSION
     Dosage: 20 MG, QD
     Route: 064
  13. AMBIEN [Concomitant]
     Active Substance: ZOLPIDEM TARTRATE
  14. AMPICILLIN [Concomitant]
     Active Substance: AMPICILLIN

REACTIONS (8)
  - Small for dates baby [Unknown]
  - Transient tachypnoea of the newborn [Recovered/Resolved]
  - Premature baby [Recovered/Resolved]
  - Bicuspid aortic valve [Unknown]
  - Left ventricular hypertrophy [Unknown]
  - Coarctation of the aorta [Unknown]
  - Systolic hypertension [Not Recovered/Not Resolved]
  - Foetal exposure during pregnancy [Recovered/Resolved]
